FAERS Safety Report 19275791 (Version 2)
Quarter: 2021Q3

REPORT INFORMATION
  Report Type: Spontaneous
  Country: IT (occurrence: IT)
  Receive Date: 20210519
  Receipt Date: 20210706
  Transmission Date: 20211014
  Serious: Yes (Other)
  Sender: FDA-Public Use
  Company Number: IT-PFIZER INC-2021471550

PATIENT
  Age: 66 Year
  Sex: Male

DRUGS (6)
  1. TAXOL [Suspect]
     Active Substance: PACLITAXEL
     Indication: INTRADUCTAL PAPILLARY MUCINOUS NEOPLASM
     Dosage: UNK, CYCLIC
  2. PACLITAXEL. [Suspect]
     Active Substance: PACLITAXEL
     Indication: INTRADUCTAL PAPILLARY MUCINOUS NEOPLASM
  3. CARBOPLATIN. [Suspect]
     Active Substance: CARBOPLATIN
     Indication: METASTASES TO LYMPH NODES
     Dosage: UNK, CYCLIC
  4. PACLITAXEL. [Suspect]
     Active Substance: PACLITAXEL
     Indication: METASTASES TO LYMPH NODES
     Dosage: UNK, CYCLIC
  5. CARBOPLATIN. [Suspect]
     Active Substance: CARBOPLATIN
     Indication: INTRADUCTAL PAPILLARY MUCINOUS NEOPLASM
  6. TAXOL [Suspect]
     Active Substance: PACLITAXEL
     Indication: METASTASES TO LYMPH NODES

REACTIONS (1)
  - Neurotoxicity [Unknown]
